FAERS Safety Report 6276569-1 (Version None)
Quarter: 2009Q3

REPORT INFORMATION
  Report Type: 
  Country: None (occurrence: None)
  Receive Date: 20090722
  Receipt Date: 20090714
  Transmission Date: 20100115
  Serious: Yes (Hospitalization, Other)
  Sender: FDA-Public Use
  Company Number: US-BAYER-200926643NA

PATIENT
  Age: 41 Year
  Sex: Female

DRUGS (1)
  1. MIRENA [Suspect]
     Indication: CONTRACEPTION
     Route: 015
     Dates: start: 20090407

REACTIONS (6)
  - BLOOD URINE PRESENT [None]
  - COMPLICATION OF DEVICE REMOVAL [None]
  - CONSTIPATION [None]
  - FEELING ABNORMAL [None]
  - IUD MIGRATION [None]
  - VAGINAL HAEMORRHAGE [None]
